FAERS Safety Report 5417830-X (Version None)
Quarter: 2007Q3

REPORT INFORMATION
  Report Type: 
  Country: None (occurrence: None)
  Receive Date: 20070815
  Receipt Date: 20070813
  Transmission Date: 20080115
  Serious: Yes (Death)
  Sender: FDA-Public Use
  Company Number: 163-21880-07080623

PATIENT
  Age: 83 Year
  Sex: Male

DRUGS (1)
  1. REVLIMID (LENALIDOMIDE) (125 MILLIGRAM, CAPSULES) [Suspect]
     Indication: MULTIPLE MYELOMA
     Dosage: 25 MG, 1 IN 1 D, ORAL
     Route: 048
     Dates: start: 20070623

REACTIONS (1)
  - DEATH [None]
